FAERS Safety Report 14296392 (Version 2)
Quarter: 2018Q4

REPORT INFORMATION
  Report Type: Spontaneous
  Country: FR (occurrence: FR)
  Receive Date: 20171218
  Receipt Date: 20181101
  Transmission Date: 20190204
  Serious: Yes (Life-Threatening, Hospitalization, Other)
  Sender: FDA-Public Use
  Company Number: FR-AUROBINDO-AUR-APL-2017-45402

PATIENT
  Age: 69 Year
  Sex: Female
  Weight: 69.5 kg

DRUGS (1)
  1. IBUPROFEN. [Suspect]
     Active Substance: IBUPROFEN
     Indication: PRODUCT USED FOR UNKNOWN INDICATION
     Dosage: UNK
     Route: 048
     Dates: start: 20170824

REACTIONS (1)
  - Necrotising fasciitis [Recovered/Resolved with Sequelae]

NARRATIVE: CASE EVENT DATE: 20170825
